FAERS Safety Report 8773878 (Version 1)
Quarter: 2012Q4

REPORT INFORMATION
  Report Type: 
  Country: IT (occurrence: IT)
  Receive Date: 20120907
  Receipt Date: 20120907
  Transmission Date: 20130627
  Serious: Yes (Other)
  Sender: FDA-Public Use
  Company Number: IT-BRISTOL-MYERS SQUIBB COMPANY-16925307

PATIENT
  Age: 85 Year
  Sex: Female

DRUGS (1)
  1. COUMADIN [Suspect]
     Indication: ATRIAL FIBRILLATION
     Dosage: Increased:2-3 tablets to  2.5 -3 tabs.
     Route: 048
     Dates: start: 19330126, end: 20120828

REACTIONS (2)
  - Deep vein thrombosis [Not Recovered/Not Resolved]
  - International normalised ratio decreased [None]
